FAERS Safety Report 16610430 (Version 1)
Quarter: 2019Q3

REPORT INFORMATION
  Report Type: Report from Study
  Country: CA (occurrence: CA)
  Receive Date: 20190722
  Receipt Date: 20190722
  Transmission Date: 20191004
  Serious: Yes (Hospitalization)
  Sender: FDA-Public Use
  Company Number: CA-JNJFOC-20190430453

PATIENT
  Age: 57 Year
  Sex: Female
  Weight: 91.5 kg

DRUGS (4)
  1. REMICADE [Suspect]
     Active Substance: INFLIXIMAB
     Indication: POLYMYALGIA RHEUMATICA
     Dosage: STRENGTH = 100 MG
     Route: 042
     Dates: start: 20180730, end: 20190416
  2. PREDNISONE. [Concomitant]
     Active Substance: PREDNISONE
     Indication: MYALGIA
  3. METHOTREXATE. [Concomitant]
     Active Substance: METHOTREXATE
     Indication: CROHN^S DISEASE
     Route: 048
  4. REMICADE [Suspect]
     Active Substance: INFLIXIMAB
     Indication: CROHN^S DISEASE
     Route: 042
     Dates: start: 2019

REACTIONS (12)
  - Hysterectomy [Recovered/Resolved]
  - Haemorrhoidal haemorrhage [Unknown]
  - Contusion [Unknown]
  - Eye pain [Unknown]
  - Product use issue [Unknown]
  - Urinary tract infection [Unknown]
  - Bladder repair [Unknown]
  - Ocular hyperaemia [Unknown]
  - Depression [Unknown]
  - Vertigo [Unknown]
  - Off label use [Unknown]
  - Diarrhoea [Not Recovered/Not Resolved]

NARRATIVE: CASE EVENT DATE: 201901
